FAERS Safety Report 8896465 (Version 1)
Quarter: 2012Q4

REPORT INFORMATION
  Report Type: Spontaneous
  Country: US (occurrence: None)
  Receive Date: 20121107
  Receipt Date: 20121107
  Transmission Date: 20130627
  Serious: Yes (Hospitalization, Other)
  Sender: FDA-Public Use
  Company Number: None

PATIENT
  Age: 8 Year
  Sex: Female

DRUGS (1)
  1. ADDERALL XR [Suspect]
     Indication: ADHD
     Dates: start: 20120101, end: 20120420

REACTIONS (3)
  - Psychotic disorder [None]
  - Convulsion [None]
  - Tremor [None]
